FAERS Safety Report 7128197-3 (Version None)
Quarter: 2010Q4

REPORT INFORMATION
  Report Type: 
  Country: None (occurrence: None)
  Receive Date: 20101130
  Receipt Date: 20101119
  Transmission Date: 20110411
  Serious: Yes (Life-Threatening, Hospitalization)
  Sender: FDA-Public Use
  Company Number: US-SANOFI-AVENTIS-2010SA070391

PATIENT
  Age: 54 Year
  Sex: Female

DRUGS (17)
  1. OXALIPLATIN [Suspect]
     Indication: NEUROENDOCRINE CARCINOMA
     Dates: start: 20100406, end: 20100406
  2. OXALIPLATIN [Suspect]
  3. BEVACIZUMAB [Suspect]
     Indication: NEUROENDOCRINE CARCINOMA
     Route: 042
     Dates: start: 20100920, end: 20100920
  4. CAPECITABINE [Suspect]
     Indication: NEUROENDOCRINE CARCINOMA
  5. LASIX [Concomitant]
  6. VICODIN [Concomitant]
  7. HYDRODIURIL [Concomitant]
  8. SANDOSTATIN LAR [Concomitant]
  9. ADVAIR DISKUS 100/50 [Concomitant]
  10. LISINOPRIL [Concomitant]
  11. ALBUTEROL [Concomitant]
  12. ADVIL [Concomitant]
  13. PRINZIDE [Concomitant]
  14. OCTREOTIDE ACETATE [Concomitant]
  15. METOPROLOL [Concomitant]
  16. LORAZEPAM [Concomitant]
  17. AMIODARONE [Concomitant]

REACTIONS (9)
  - DEHYDRATION [None]
  - DIZZINESS [None]
  - ECCHYMOSIS [None]
  - HYPOTENSION [None]
  - OEDEMA [None]
  - PROCEDURAL SITE REACTION [None]
  - SKIN DISORDER [None]
  - UMBILICAL HERNIA, OBSTRUCTIVE [None]
  - WOUND DEHISCENCE [None]
